FAERS Safety Report 8372118-2 (Version None)
Quarter: 2012Q2

REPORT INFORMATION
  Report Type: 
  Country: None (occurrence: None)
  Receive Date: 20120521
  Receipt Date: 20120516
  Transmission Date: 20120825
  Serious: Yes (Other)
  Sender: FDA-Public Use
  Company Number: FI-AMGEN-FINSP2012030642

PATIENT
  Age: 61 Year
  Sex: Male

DRUGS (3)
  1. XGEVA [Suspect]
     Indication: LUNG NEOPLASM MALIGNANT
     Dosage: 120 MG, Q4WK
     Route: 058
     Dates: start: 20120103, end: 20120403
  2. XGEVA [Suspect]
     Indication: METASTASES TO BONE
  3. VINORELBINE [Concomitant]
     Indication: CHEMOTHERAPY
     Dosage: UNK
     Dates: start: 20111201, end: 20120401

REACTIONS (1)
  - OSTEONECROSIS OF JAW [None]
